FAERS Safety Report 18979037 (Version 5)
Quarter: 2022Q1

REPORT INFORMATION
  Report Type: Spontaneous
  Country: DE (occurrence: None)
  Receive Date: 20210308
  Receipt Date: 20220215
  Transmission Date: 20220423
  Serious: Yes (Hospitalization, Other)
  Sender: FDA-Public Use
  Company Number: DE-ROCHE-2318759

PATIENT
  Age: 62 Year
  Sex: Male
  Weight: 72 kg

DRUGS (20)
  1. MABTHERA [Suspect]
     Active Substance: RITUXIMAB
     Indication: Non-Hodgkin^s lymphoma
     Dosage: 2 ADMINISTRATIONS IN TOTAL
     Route: 042
     Dates: start: 20190122, end: 20190123
  2. MABTHERA [Suspect]
     Active Substance: RITUXIMAB
     Dosage: DATE OF TREATMENT: JUN/2018, JUL/2018, AUG/2018, SEP/208, NOV/2018 AND JAN/2019?5 DOSES, WITH BENDAM
     Route: 042
     Dates: start: 20180122, end: 201810
  3. MABTHERA [Suspect]
     Active Substance: RITUXIMAB
     Dosage: DATE OF TREATMENT: JUN/2018, JUL/2018, AUG/2018, SEP/208, NOV/2018 AND JAN/2019?5X WITH CHOP, 1X WIT
     Route: 042
     Dates: start: 201109, end: 201112
  4. MABTHERA [Suspect]
     Active Substance: RITUXIMAB
     Dosage: WITH ICE
     Route: 042
     Dates: start: 201201, end: 201201
  5. MABTHERA [Suspect]
     Active Substance: RITUXIMAB
     Dosage: WITH BEAM
     Route: 042
     Dates: start: 201202, end: 201202
  6. COPEGUS [Suspect]
     Active Substance: RIBAVIRIN
     Indication: Hepatitis E
     Dosage: NEXT DOSE WAS RECEIVED ON /DEC/2019 AND STOPPED ON /AUG/2021
     Route: 065
     Dates: start: 2019, end: 201908
  7. COPEGUS [Suspect]
     Active Substance: RIBAVIRIN
     Route: 048
     Dates: start: 20191223, end: 202008
  8. COPEGUS [Suspect]
     Active Substance: RIBAVIRIN
     Route: 065
     Dates: start: 20190701, end: 20190927
  9. CYCLOPHOSPHAMIDE\DOXORUBICIN\PREDNISONE\VINCRISTINE [Suspect]
     Active Substance: CYCLOPHOSPHAMIDE\DOXORUBICIN\PREDNISONE\VINCRISTINE
     Indication: Mantle cell lymphoma
     Route: 065
     Dates: start: 201109, end: 201112
  10. BENDAMUSTINE [Suspect]
     Active Substance: BENDAMUSTINE
     Indication: Non-Hodgkin^s lymphoma recurrent
     Dosage: 5 DOSES, WITH RITUXIMAB
     Route: 042
     Dates: start: 20180122, end: 201810
  11. CISPLATIN\CYTARABINE\DEXAMETHASONE [Suspect]
     Active Substance: CISPLATIN\CYTARABINE\DEXAMETHASONE
     Indication: Mantle cell lymphoma
     Dosage: IN COMBINATION WITH RITUXIMAB
     Route: 065
     Dates: start: 201109, end: 201112
  12. BEAM [Suspect]
     Active Substance: SODIUM FLUORIDE
     Indication: Mantle cell lymphoma
     Dosage: IN COMBINATION WITH RITUXIMAB
     Route: 065
     Dates: start: 201202, end: 201202
  13. IBRUTINIB [Suspect]
     Active Substance: IBRUTINIB
     Indication: Non-Hodgkin^s lymphoma recurrent
     Route: 065
     Dates: start: 201511, end: 2017
  14. DIETARY SUPPLEMENT\HERBALS\MILK THISTLE [Concomitant]
     Active Substance: DIETARY SUPPLEMENT\HERBALS\MILK THISTLE
     Indication: Liver disorder
  15. BISOPROLOL [Concomitant]
     Active Substance: BISOPROLOL
     Dosage: 1-0-1
  16. LEVOTHYROXINE SODIUM [Concomitant]
     Active Substance: LEVOTHYROXINE SODIUM
     Dosage: 1-0-0
  17. FLECAINIDE [Concomitant]
     Active Substance: FLECAINIDE
     Indication: Atrial fibrillation
  18. ZINC [Concomitant]
     Active Substance: ZINC
  19. SELENIUM [Concomitant]
     Active Substance: SELENIUM
  20. PANCRELIPASE [Concomitant]
     Active Substance: PANCRELIPASE

REACTIONS (54)
  - Hepatitis E [Not Recovered/Not Resolved]
  - Off label use [Unknown]
  - Lymphoma [Not Recovered/Not Resolved]
  - Genital herpes [Unknown]
  - Pneumonia [Unknown]
  - Acute kidney injury [Recovered/Resolved with Sequelae]
  - Oral candidiasis [Recovered/Resolved]
  - Hypogammaglobulinaemia [Not Recovered/Not Resolved]
  - Lymphopenia [Not Recovered/Not Resolved]
  - Febrile neutropenia [Unknown]
  - Diarrhoea [Unknown]
  - Mantle cell lymphoma [Not Recovered/Not Resolved]
  - Influenza [Recovered/Resolved]
  - Hyperuricaemia [Unknown]
  - Pancytopenia [Unknown]
  - Renal failure [Recovering/Resolving]
  - Abdominal lymphadenopathy [Recovering/Resolving]
  - Hernia [Not Recovered/Not Resolved]
  - Goitre [Not Recovered/Not Resolved]
  - Aortic valve incompetence [Unknown]
  - Mitral valve incompetence [Unknown]
  - Cardiac hypertrophy [Unknown]
  - Hypertension [Not Recovered/Not Resolved]
  - Carotid arteriosclerosis [Unknown]
  - Lipid metabolism disorder [Unknown]
  - Prostatomegaly [Unknown]
  - Prostatitis [Unknown]
  - Neuropathy peripheral [Unknown]
  - Fatigue [Unknown]
  - Type 2 diabetes mellitus [Not Recovered/Not Resolved]
  - Diabetic neuropathy [Not Recovered/Not Resolved]
  - Spinal pain [Unknown]
  - Spinal osteoarthritis [Unknown]
  - Osteochondrosis [Unknown]
  - Intervertebral disc protrusion [Unknown]
  - Seasonal allergy [Unknown]
  - Nasal polyps [Unknown]
  - Adjustment disorder with depressed mood [Unknown]
  - Dysplastic naevus [Recovered/Resolved]
  - Lentigo maligna [Recovered/Resolved]
  - Basal cell carcinoma [Recovered/Resolved]
  - Transient ischaemic attack [Recovered/Resolved]
  - Conjunctivitis [Recovered/Resolved]
  - Herpes simplex [Recovering/Resolving]
  - Asthenia [Not Recovered/Not Resolved]
  - Dyspnoea exertional [Not Recovered/Not Resolved]
  - Gastrointestinal disorder [Not Recovered/Not Resolved]
  - Pain in extremity [Not Recovered/Not Resolved]
  - Musculoskeletal disorder [Not Recovered/Not Resolved]
  - Road traffic accident [Unknown]
  - Spinal column injury [Not Recovered/Not Resolved]
  - Arthropathy [Not Recovered/Not Resolved]
  - Headache [Not Recovered/Not Resolved]
  - Sleep disorder [Not Recovered/Not Resolved]

NARRATIVE: CASE EVENT DATE: 20120101
